FAERS Safety Report 7776608-2 (Version None)
Quarter: 2011Q3

REPORT INFORMATION
  Report Type: 
  Country: None (occurrence: None)
  Receive Date: 20110926
  Receipt Date: 20110916
  Transmission Date: 20111222
  Serious: No
  Sender: FDA-Public Use
  Company Number: US-US-EMD SERONO, INC.-7077444

PATIENT
  Sex: Female
  Weight: 59 kg

DRUGS (5)
  1. REBIF [Suspect]
  2. REBIF [Suspect]
     Indication: MULTIPLE SCLEROSIS
     Route: 058
     Dates: start: 20110510
  3. NEURONTIN [Concomitant]
     Indication: NEURALGIA
  4. CYMBALTA [Concomitant]
     Indication: DEPRESSION
  5. BACLOFEN [Concomitant]
     Indication: MUSCLE SPASMS

REACTIONS (8)
  - PROTRUSION TONGUE [None]
  - MUSCULAR WEAKNESS [None]
  - PAIN [None]
  - MUSCULOSKELETAL STIFFNESS [None]
  - APHASIA [None]
  - HYPOTENSION [None]
  - HEADACHE [None]
  - UNRESPONSIVE TO STIMULI [None]
